FAERS Safety Report 24283752 (Version 1)
Quarter: 2024Q3

REPORT INFORMATION
  Report Type: Report from Study
  Country: BG (occurrence: BG)
  Receive Date: 20240905
  Receipt Date: 20240905
  Transmission Date: 20241016
  Serious: Yes (Other)
  Sender: ABBVIE
  Company Number: BG-ABBVIE-5904492

PATIENT
  Age: 74 Year

DRUGS (1)
  1. HUMIRA [Suspect]
     Active Substance: ADALIMUMAB
     Indication: Ankylosing spondylitis
     Dosage: 1 FL. EVERY 14 DAYS
     Route: 058
     Dates: start: 20130831, end: 20240527

REACTIONS (1)
  - Renal failure [Unknown]
